FAERS Safety Report 7002359-8 (Version None)
Quarter: 2010Q3

REPORT INFORMATION
  Report Type: 
  Country: None (occurrence: None)
  Receive Date: 20100920
  Receipt Date: 20100115
  Transmission Date: 20110219
  Serious: No
  Sender: FDA-Public Use
  Company Number: US-ASTRAZENECA-2009SE14796

PATIENT
  Age: 45 Year
  Sex: Female
  Weight: 100.7 kg

DRUGS (9)
  1. SEROQUEL [Suspect]
     Indication: BIPOLAR DISORDER
     Route: 048
     Dates: start: 20030101
  2. SEROQUEL [Suspect]
     Indication: SCHIZOPHRENIA
     Route: 048
     Dates: start: 20030101
  3. SEROQUEL [Suspect]
     Dosage: 200 MG TO 800 MG
     Route: 048
     Dates: start: 20030610
  4. SEROQUEL [Suspect]
     Dosage: 200 MG TO 800 MG
     Route: 048
     Dates: start: 20030610
  5. RISPERDAL [Concomitant]
     Dates: start: 20041001
  6. ATIVAN [Concomitant]
     Dates: start: 20081001
  7. DEPAKOTE ER [Concomitant]
     Dates: start: 20030610
  8. ZOLOFT [Concomitant]
     Dates: start: 20030610
  9. ABILIFY [Concomitant]
     Dates: start: 20030610

REACTIONS (4)
  - BACK INJURY [None]
  - DIABETES MELLITUS [None]
  - OBESITY [None]
  - TYPE 2 DIABETES MELLITUS [None]
